FAERS Safety Report 5677868-4 (Version None)
Quarter: 2008Q1

REPORT INFORMATION
  Report Type: 
  Country: None (occurrence: None)
  Receive Date: 20080319
  Receipt Date: 20080313
  Transmission Date: 20080703
  Serious: Yes (Other)
  Sender: FDA-Public Use
  Company Number: CHPA2008US04620

PATIENT
  Sex: Female

DRUGS (5)
  1. TRANSDERM SCOP [Suspect]
     Dosage: 1.5 MG, TRANSDERMAL
     Route: 062
  2. AZITHROMYCIN [Concomitant]
  3. BENAZEPRIL HCL [Concomitant]
  4. ^VERAMYST^ SPRAY [Concomitant]
  5. LIPITOR /NET/ (ATORVASTATIN CALCIUM) [Concomitant]

REACTIONS (4)
  - DISORIENTATION [None]
  - FALL [None]
  - HALLUCINATION [None]
  - MEMORY IMPAIRMENT [None]
